FAERS Safety Report 6124548-7 (Version None)
Quarter: 2009Q1

REPORT INFORMATION
  Report Type: 
  Country: None (occurrence: None)
  Receive Date: 20090319
  Receipt Date: 20090313
  Transmission Date: 20090719
  Serious: Yes (Disabling, Other)
  Sender: FDA-Public Use
  Company Number: JP-MERCK-0903USA02642

PATIENT
  Age: 49 Year
  Sex: Female

DRUGS (1)
  1. DECADRON [Suspect]
     Route: 048
     Dates: start: 19870101

REACTIONS (4)
  - MOBILITY DECREASED [None]
  - OSTEOMYELITIS [None]
  - OSTEONECROSIS [None]
  - OSTEOPOROTIC FRACTURE [None]
